FAERS Safety Report 25747730 (Version 1)
Quarter: 2025Q3

REPORT INFORMATION
  Report Type: Spontaneous
  Country: EU (occurrence: EU)
  Receive Date: 20250901
  Receipt Date: 20250901
  Transmission Date: 20251021
  Serious: Yes (Hospitalization, Other)
  Sender: JOHNSON AND JOHNSON
  Company Number: EU-JNJFOC-20250900405

PATIENT
  Age: 78 Year
  Sex: Female

DRUGS (2)
  1. XARELTO [Suspect]
     Active Substance: RIVAROXABAN
     Indication: Atrial fibrillation
     Dates: start: 202502
  2. HEPARIN [Concomitant]
     Active Substance: HEPARIN SODIUM
     Indication: Product used for unknown indication

REACTIONS (6)
  - Anal cancer stage IV [Unknown]
  - Gastrointestinal neoplasm [Not Recovered/Not Resolved]
  - Intestinal haemorrhage [Unknown]
  - Peripheral swelling [Unknown]
  - Labelled drug-disease interaction medication error [Unknown]
  - Contraindicated product administered [Unknown]
